FAERS Safety Report 5729474-0 (Version None)
Quarter: 2008Q2

REPORT INFORMATION
  Report Type: 
  Country: None (occurrence: None)
  Receive Date: 20080430
  Receipt Date: 20080220
  Transmission Date: 20081010
  Serious: No
  Sender: FDA-Public Use
  Company Number: 2008PV034325

PATIENT
  Age: 27 Year
  Sex: Female

DRUGS (6)
  1. SYMLIN [Suspect]
     Indication: TYPE 1 DIABETES MELLITUS
     Dosage: 60 MCG;TID;SC; 45 MCG;TID;SC; 30 MCG;TID;SC; 15 MCG;TID;SC
     Route: 058
     Dates: start: 20080201, end: 20080201
  2. SYMLIN [Suspect]
     Indication: TYPE 1 DIABETES MELLITUS
     Dosage: 60 MCG;TID;SC; 45 MCG;TID;SC; 30 MCG;TID;SC; 15 MCG;TID;SC
     Route: 058
     Dates: start: 20080201, end: 20080201
  3. SYMLIN [Suspect]
     Indication: TYPE 1 DIABETES MELLITUS
     Dosage: 60 MCG;TID;SC; 45 MCG;TID;SC; 30 MCG;TID;SC; 15 MCG;TID;SC
     Route: 058
     Dates: start: 20080201, end: 20080201
  4. SYMLIN [Suspect]
     Indication: TYPE 1 DIABETES MELLITUS
     Dosage: 60 MCG;TID;SC; 45 MCG;TID;SC; 30 MCG;TID;SC; 15 MCG;TID;SC
     Route: 058
     Dates: start: 20080220
  5. HUMALOG [Concomitant]
  6. LAMISAL [Concomitant]

REACTIONS (3)
  - BLOOD GLUCOSE INCREASED [None]
  - DIZZINESS [None]
  - NAUSEA [None]
